FAERS Safety Report 13682257 (Version 1)
Quarter: 2017Q2

REPORT INFORMATION
  Report Type: Spontaneous
  Country: US (occurrence: US)
  Receive Date: 20170622
  Receipt Date: 20170622
  Transmission Date: 20170830
  Serious: Yes (Hospitalization)
  Sender: FDA-Public Use
  Company Number: None

PATIENT
  Age: 88 Year
  Sex: Male

DRUGS (1)
  1. VENLAFAXINE [Suspect]
     Active Substance: VENLAFAXINE HYDROCHLORIDE
     Indication: PAIN
     Route: 048
     Dates: start: 20170207, end: 20170618

REACTIONS (7)
  - Syncope [None]
  - Orthostatic hypotension [None]
  - Dizziness [None]
  - Blood creatinine increased [None]
  - Hypovolaemia [None]
  - Autonomic nervous system imbalance [None]
  - Neuropathy peripheral [None]

NARRATIVE: CASE EVENT DATE: 20170617
